FAERS Safety Report 8018846-X (Version None)
Quarter: 2012Q1

REPORT INFORMATION
  Report Type: 
  Country: None (occurrence: None)
  Receive Date: 20120103
  Receipt Date: 20111227
  Transmission Date: 20120608
  Serious: Yes (Hospitalization, Other)
  Sender: FDA-Public Use
  Company Number: US-AMGEN-USASP2011047787

PATIENT
  Age: 21 Year
  Sex: Male

DRUGS (1)
  1. ENBREL [Suspect]
     Indication: JUVENILE ARTHRITIS
     Dosage: 25 MG, 2X/WK
     Route: 058
     Dates: start: 20030601

REACTIONS (7)
  - DIABETES MELLITUS [None]
  - BLOOD GLUCOSE INCREASED [None]
  - ALOPECIA [None]
  - ACNE [None]
  - BLOOD TESTOSTERONE DECREASED [None]
  - INGROWN HAIR [None]
  - THYROID FUNCTION TEST ABNORMAL [None]
